FAERS Safety Report 9739504 (Version 1)
Quarter: 2013Q4

REPORT INFORMATION
  Report Type: Spontaneous
  Country: US (occurrence: US)
  Receive Date: 20131209
  Receipt Date: 20131209
  Transmission Date: 20140711
  Serious: Yes (Hospitalization)
  Sender: FDA-Public Use
  Company Number: US-BAYER-2013-148705

PATIENT
  Age: 40 Year
  Sex: Female

DRUGS (8)
  1. YAZ [Suspect]
  2. IMITREX [Concomitant]
     Indication: MIGRAINE
     Dosage: 100 MG, PRN
     Route: 048
     Dates: start: 20110216
  3. FISH OIL [Concomitant]
     Dosage: 3 G, BID
     Route: 048
     Dates: start: 20110216
  4. FLEXERIL [Concomitant]
     Indication: MUSCLE SPASMS
     Dosage: 10 MG, PRN
     Route: 048
  5. CLARITIN [Concomitant]
     Dosage: 10 MG, DAILY
     Route: 048
     Dates: start: 20110216
  6. LEVOTHYROXINE [Concomitant]
     Dosage: 112 MCG/24HR, UNK
     Route: 048
     Dates: start: 20110216
  7. VITAMIN D [Concomitant]
     Dosage: 2000 IU, DAILY
     Route: 048
     Dates: start: 20110216
  8. CODEINE [Concomitant]
     Dosage: UNK
     Route: 048
     Dates: start: 20110216

REACTIONS (1)
  - Pulmonary embolism [None]
